FAERS Safety Report 17433983 (Version 1)
Quarter: 2020Q1

REPORT INFORMATION
  Report Type: Spontaneous
  Country: US (occurrence: US)
  Receive Date: 20200203
  Receipt Date: 20200203
  Transmission Date: 20200409
  Serious: Yes (Hospitalization)
  Sender: FDA-Public Use
  Company Number: None

PATIENT
  Age: 65 Year
  Sex: Female

DRUGS (9)
  1. AZITHROMYCIN ANHYDROUS. [Concomitant]
     Active Substance: AZITHROMYCIN ANHYDROUS
  2. AMOX/K CLAV [Concomitant]
     Active Substance: AMOXICILLIN\CLAVULANATE POTASSIUM
     Dosage: ?          OTHER DOSE:875-125MG;?
  3. HUMIRA [Suspect]
     Active Substance: ADALIMUMAB
     Indication: RHEUMATOID ARTHRITIS
     Dosage: ?          OTHER FREQUENCY:EVERY 14 DAYS;?
     Route: 058
     Dates: start: 20200106
  4. PROAIR HFA [Concomitant]
     Active Substance: ALBUTEROL SULFATE
  5. OSELTMIVIR [Concomitant]
  6. CYCLOBENZAPR [Concomitant]
     Active Substance: CYCLOBENZAPRINE
  7. PREDNISONE. [Concomitant]
     Active Substance: PREDNISONE
  8. SUPREP BOWL SOL [Concomitant]
  9. METHYLPRED [Suspect]
     Active Substance: METHYLPREDNISOLONE

REACTIONS (1)
  - Influenza [None]

NARRATIVE: CASE EVENT DATE: 20200131
